FAERS Safety Report 8679614 (Version 7)
Quarter: 2013Q2

REPORT INFORMATION
  Report Type: Spontaneous
  Country: US (occurrence: US)
  Receive Date: 20120724
  Receipt Date: 20130409
  Transmission Date: 20140414
  Serious: Yes (Other)
  Sender: FDA-Public Use
  Company Number: US-PFIZER INC-2012173369

PATIENT
  Age: 71 Year
  Sex: Female
  Weight: 56.69 kg

DRUGS (6)
  1. EFFEXOR XR [Suspect]
     Indication: DEPRESSION
     Dosage: 75 MG THREE A DAY
     Dates: start: 2012
  2. ACCUPRIL [Suspect]
     Indication: HYPERTENSION
     Dosage: 20 MG, 2X/DAY
     Dates: end: 2012
  3. ACCUPRIL [Suspect]
     Dosage: 40 MG, 2X/DAY
     Dates: start: 2012
  4. EFFEXOR [Suspect]
     Indication: DEPRESSION
     Dosage: 375 MG (THREE 100MG TABLET AND ONE TABLET OF 75MG), 1X/DAY
     Route: 048
  5. XYREM [Suspect]
     Dosage: 4.5 MG TWO TIMES AT NIGHT
     Dates: start: 2012
  6. SYNTHROID [Concomitant]
     Dosage: UNK

REACTIONS (4)
  - Narcolepsy [Not Recovered/Not Resolved]
  - Sleep apnoea syndrome [Not Recovered/Not Resolved]
  - Accident [Unknown]
  - Head injury [Recovering/Resolving]
